FAERS Safety Report 8212737-7 (Version None)
Quarter: 2012Q1

REPORT INFORMATION
  Report Type: 
  Country: None (occurrence: None)
  Receive Date: 20120315
  Receipt Date: 20120309
  Transmission Date: 20120608
  Serious: Yes (Hospitalization)
  Sender: FDA-Public Use
  Company Number: BE-MERCK-1203BEL00006

PATIENT
  Age: 56 Year
  Sex: Female

DRUGS (1)
  1. CANCIDAS [Suspect]
     Indication: URINARY TRACT INFECTION FUNGAL
     Route: 041

REACTIONS (3)
  - RENAL ABSCESS [None]
  - DRUG INEFFECTIVE [None]
  - SYSTEMIC CANDIDA [None]
